FAERS Safety Report 10343840 (Version 2)
Quarter: 2016Q3

REPORT INFORMATION
  Report Type: Spontaneous
  Country: CA (occurrence: CA)
  Receive Date: 20140726
  Receipt Date: 20160720
  Transmission Date: 20161109
  Serious: Yes (Other)
  Sender: FDA-Public Use
  Company Number: CA-JNJFOC-20140709190

PATIENT
  Age: 35 Year
  Sex: Female
  Weight: 55 kg

DRUGS (2)
  1. TYLENOL WITH CODEINE [Suspect]
     Active Substance: ACETAMINOPHEN\CODEINE PHOSPHATE
     Indication: PRODUCT USED FOR UNKNOWN INDICATION
     Route: 065
  2. TYLENOL [Suspect]
     Active Substance: ACETAMINOPHEN
     Indication: PRODUCT USED FOR UNKNOWN INDICATION
     Route: 065

REACTIONS (9)
  - Aspartate aminotransferase increased [Recovered/Resolved]
  - Blood alkaline phosphatase increased [Recovered/Resolved]
  - Hepatitis [Recovered/Resolved]
  - Gamma-glutamyltransferase increased [Recovered/Resolved]
  - Overdose [Recovered/Resolved]
  - Hepatic enzyme increased [Recovered/Resolved]
  - Blood bilirubin increased [Recovered/Resolved]
  - Alcohol interaction [Recovered/Resolved]
  - Alanine aminotransferase increased [Recovered/Resolved]
